FAERS Safety Report 16908108 (Version 1)
Quarter: 2019Q4

REPORT INFORMATION
  Report Type: Spontaneous
  Country: DE (occurrence: DE)
  Receive Date: 20191011
  Receipt Date: 20191011
  Transmission Date: 20200122
  Serious: Yes (Other)
  Sender: FDA-Public Use
  Company Number: DE-TEVA-2019-DE-1120784

PATIENT
  Age: 34 Year
  Sex: Male
  Weight: 71 kg

DRUGS (1)
  1. CIPROFLOX - CT 500 MG FILMTABLETTEN [Suspect]
     Active Substance: CIPROFLOXACIN HYDROCHLORIDE
     Dosage: 9 TABLETS IN TOTAL TAKEN
     Dates: start: 20190720, end: 20190725

REACTIONS (8)
  - Eye pain [Recovered/Resolved]
  - Pain in extremity [Recovered/Resolved]
  - Hypoaesthesia [Recovered/Resolved]
  - Dizziness [Recovered/Resolved]
  - Myalgia [Recovered/Resolved]
  - Head discomfort [Recovered/Resolved]
  - Paralysis [Recovered/Resolved]
  - Arthralgia [Recovered/Resolved]

NARRATIVE: CASE EVENT DATE: 20190720
